FAERS Safety Report 17560237 (Version 2)
Quarter: 2024Q4

REPORT INFORMATION
  Report Type: Spontaneous
  Country: IT (occurrence: IT)
  Receive Date: 20200319
  Receipt Date: 20241218
  Transmission Date: 20250115
  Serious: Yes (Life-Threatening, Hospitalization, Other)
  Sender: NOVARTIS
  Company Number: IT-NOVARTISPH-NVSC2020IT051492

PATIENT
  Age: 59 Year
  Sex: Male

DRUGS (9)
  1. CYCLOSPORINE [Suspect]
     Active Substance: CYCLOSPORINE
     Indication: Prophylaxis against graft versus host disease
     Dosage: 3 MG/KG, CONTINUOUS INFUSION FROM DAY -1
     Route: 042
     Dates: start: 201803, end: 201804
  2. BUSULFAN [Suspect]
     Active Substance: BUSULFAN
     Indication: Allogenic stem cell transplantation
     Dosage: 240 MG, QD, ON DAYS -5 AND -4
     Route: 065
  3. LAPINE T-LYMPHOCYTE IMMUNE GLOBULIN [Suspect]
     Active Substance: LAPINE T-LYMPHOCYTE IMMUNE GLOBULIN
     Indication: Prophylaxis against graft versus host disease
     Dosage: 2.5 MG/KG QD, 3, -2, -1
     Route: 042
  4. THIOTEPA [Suspect]
     Active Substance: THIOTEPA
     Indication: Allogenic stem cell transplantation
     Dosage: 390 MG, QD, ON DAY -6
     Route: 065
  5. FLUDARABINE [Suspect]
     Active Substance: FLUDARABINE PHOSPHATE
     Indication: Allogenic stem cell transplantation
     Dosage: 80 MG, QD, ON DAY -3
     Route: 065
  6. METHOTREXATE [Suspect]
     Active Substance: METHOTREXATE
     Indication: Prophylaxis against graft versus host disease
     Dosage: 30 MG QD
     Route: 065
  7. METHOTREXATE [Suspect]
     Active Substance: METHOTREXATE
     Dosage: 20 MG, QD
     Route: 065
  8. METHOTREXATE [Suspect]
     Active Substance: METHOTREXATE
     Dosage: 30 MG DAY +1 THEN 20 MG DAYS +3 AND +6
     Route: 065
     Dates: start: 201803
  9. MICAFUNGIN [Concomitant]
     Active Substance: MICAFUNGIN SODIUM
     Indication: Antifungal prophylaxis
     Dosage: UNK
     Route: 065
     Dates: start: 201803

REACTIONS (15)
  - Rhinocerebral mucormycosis [Recovered/Resolved]
  - Vasogenic cerebral oedema [Recovered/Resolved]
  - Ophthalmic vein thrombosis [Recovered/Resolved]
  - Cavernous sinus thrombosis [Recovered/Resolved]
  - Trigeminal neuralgia [Recovered/Resolved]
  - Brain abscess [Recovered/Resolved]
  - Carotid artery thrombosis [Recovered/Resolved]
  - Sensory loss [Recovered/Resolved]
  - Sinusitis fungal [Recovered/Resolved]
  - VIth nerve paralysis [Recovered/Resolved]
  - Weight decreased [Recovered/Resolved]
  - Graft versus host disease in gastrointestinal tract [Recovering/Resolving]
  - Graft versus host disease in eye [Recovering/Resolving]
  - Graft versus host disease in skin [Recovering/Resolving]
  - Graft versus host disease in liver [Recovering/Resolving]

NARRATIVE: CASE EVENT DATE: 20180101
